FAERS Safety Report 18086956 (Version 7)
Quarter: 2025Q4

REPORT INFORMATION
  Report Type: Spontaneous
  Country: US (occurrence: US)
  Receive Date: 20200729
  Receipt Date: 20251211
  Transmission Date: 20260117
  Serious: No
  Sender: PFIZER
  Company Number: US-PFIZER INC-2020202000

PATIENT
  Age: 66 Year
  Sex: Female
  Weight: 82.55 kg

DRUGS (2)
  1. PREMARIN [Suspect]
     Active Substance: ESTROGENS, CONJUGATED
     Indication: Urinary tract infection
     Dosage: UNK (0.625MG/G; APPLY A LITTLE BIT TO URETHRA; APPLY A QUARTER OF INCH)
     Route: 066
     Dates: start: 2018
  2. PREMARIN [Suspect]
     Active Substance: ESTROGENS, CONJUGATED
     Dosage: APPLY 1 GM TO VAGINAL AREA WITH FINGERTIP OR APPLICATOR 2-3X PER WEEK
     Route: 067

REACTIONS (7)
  - Off label use [Unknown]
  - Off label use [Unknown]
  - Drug effective for unapproved indication [Unknown]
  - Expired product administered [Unknown]
  - Overweight [Unknown]
  - Off label use [Unknown]
  - Wrong technique in product usage process [Unknown]

NARRATIVE: CASE EVENT DATE: 20180101
